FAERS Safety Report 22892391 (Version 3)
Quarter: 2023Q4

REPORT INFORMATION
  Report Type: Spontaneous
  Country: FR (occurrence: FR)
  Receive Date: 20230901
  Receipt Date: 20231028
  Transmission Date: 20240110
  Serious: Yes (Hospitalization)
  Sender: FDA-Public Use
  Company Number: None

PATIENT
  Age: 22 Year
  Sex: Male
  Weight: 70 kg

DRUGS (4)
  1. TRAMADOL [Suspect]
     Active Substance: TRAMADOL\TRAMADOL HYDROCHLORIDE
     Indication: Toxicity to various agents
     Route: 065
     Dates: start: 20230719, end: 20230719
  2. VENLAFAXINE [Suspect]
     Active Substance: VENLAFAXINE HYDROCHLORIDE
     Indication: Toxicity to various agents
     Route: 065
     Dates: start: 20230719, end: 20230719
  3. ACETAMINOPHEN [Suspect]
     Active Substance: ACETAMINOPHEN
     Indication: Toxicity to various agents
     Route: 065
     Dates: start: 20230719, end: 20230719
  4. CODEINE [Suspect]
     Active Substance: CODEINE
     Indication: Toxicity to various agents
     Route: 065
     Dates: start: 20230719, end: 20230719

REACTIONS (4)
  - Tachycardia [Recovered/Resolved]
  - Toxicity to various agents [Recovered/Resolved]
  - Respiratory failure [Recovered/Resolved]
  - Coma [Recovered/Resolved]

NARRATIVE: CASE EVENT DATE: 20230719
